FAERS Safety Report 5500384-7 (Version None)
Quarter: 2007Q4

REPORT INFORMATION
  Report Type: 
  Country: None (occurrence: None)
  Receive Date: 20071025
  Receipt Date: 20071019
  Transmission Date: 20080405
  Serious: Yes (Death, Hospitalization)
  Sender: FDA-Public Use
  Company Number: 167-C5013-07090273

PATIENT
  Age: 71 Year
  Sex: Female

DRUGS (1)
  1. CC-5013 (LENALIDOMIDE) (CAPSULES) [Suspect]
     Indication: MYELODYSPLASTIC SYNDROME
     Dosage: 10 MG, DAILY, ORAL
     Route: 048
     Dates: start: 20060925, end: 20061007

REACTIONS (13)
  - ABDOMINAL PAIN [None]
  - AGITATION [None]
  - CHEST PAIN [None]
  - DISEASE PROGRESSION [None]
  - PLATELET COUNT DECREASED [None]
  - PLEURAL EFFUSION [None]
  - PRURITUS [None]
  - PULMONARY HAEMORRHAGE [None]
  - RESPIRATORY DISTRESS [None]
  - SEPSIS [None]
  - SPLENOMEGALY [None]
  - VENOUS PRESSURE JUGULAR INCREASED [None]
  - WHITE BLOOD CELL COUNT INCREASED [None]
